FAERS Safety Report 6487161-8 (Version None)
Quarter: 2009Q4

REPORT INFORMATION
  Report Type: 
  Country: None (occurrence: None)
  Receive Date: 20091210
  Receipt Date: 20090827
  Transmission Date: 20100525
  Serious: No
  Sender: FDA-Public Use
  Company Number: US-AMGEN-KDL359545

PATIENT
  Sex: Female

DRUGS (1)
  1. ENBREL [Suspect]
     Indication: PSORIASIS
     Route: 058
     Dates: start: 20090715

REACTIONS (7)
  - DIZZINESS [None]
  - FLANK PAIN [None]
  - HYPERSOMNIA [None]
  - MALAISE [None]
  - OLIGOMENORRHOEA [None]
  - POOR QUALITY SLEEP [None]
  - PSORIASIS [None]
